FAERS Safety Report 7730922-5 (Version None)
Quarter: 2011Q3

REPORT INFORMATION
  Report Type: 
  Country: None (occurrence: None)
  Receive Date: 20110906
  Receipt Date: 20110901
  Transmission Date: 20111222
  Serious: Yes (Other)
  Sender: FDA-Public Use
  Company Number: US-PFIZER INC-2009273218

PATIENT
  Sex: Female

DRUGS (2)
  1. PRISTIQ [Suspect]
     Dosage: UNK
  2. ZOLOFT [Suspect]
     Indication: DEPRESSION
     Dosage: 300MG, DAILY

REACTIONS (8)
  - SUICIDE ATTEMPT [None]
  - CRYING [None]
  - VOMITING [None]
  - SUICIDAL IDEATION [None]
  - ASTHENIA [None]
  - MALAISE [None]
  - BEDRIDDEN [None]
  - ACTIVITIES OF DAILY LIVING IMPAIRED [None]
